FAERS Safety Report 7076086-5 (Version None)
Quarter: 2010Q4

REPORT INFORMATION
  Report Type: 
  Country: None (occurrence: None)
  Receive Date: 20101101
  Receipt Date: 20101021
  Transmission Date: 20110411
  Serious: No
  Sender: FDA-Public Use
  Company Number: 2007BI007094

PATIENT
  Sex: Female

DRUGS (2)
  1. TYSABRI [Suspect]
     Indication: MULTIPLE SCLEROSIS
     Route: 042
     Dates: start: 20070219
  2. AMPYRA [Concomitant]
     Dates: start: 20100701

REACTIONS (6)
  - ARTHRALGIA [None]
  - BACK PAIN [None]
  - BURSITIS [None]
  - JOINT SWELLING [None]
  - PAIN IN EXTREMITY [None]
  - PRURITUS [None]
